FAERS Safety Report 17840093 (Version 1)
Quarter: 2020Q2

REPORT INFORMATION
  Report Type: Spontaneous
  Country: US (occurrence: US)
  Receive Date: 20200529
  Receipt Date: 20200529
  Transmission Date: 20200714
  Serious: No
  Sender: FDA-Public Use
  Company Number: US-ACCORD-175261

PATIENT
  Sex: Male

DRUGS (1)
  1. CLONAZEPAM ACCORD [Suspect]
     Active Substance: CLONAZEPAM
     Indication: PRODUCT USED FOR UNKNOWN INDICATION

REACTIONS (8)
  - Derealisation [Unknown]
  - Impulsive behaviour [Unknown]
  - Withdrawal syndrome [Unknown]
  - Agitation [Unknown]
  - Irritability [Unknown]
  - Depersonalisation/derealisation disorder [Unknown]
  - Panic reaction [Unknown]
  - Anger [Unknown]
